FAERS Safety Report 20126796 (Version 1)
Quarter: 2021Q4

REPORT INFORMATION
  Report Type: Spontaneous
  Country: IN (occurrence: None)
  Receive Date: 20211128
  Receipt Date: 20211128
  Transmission Date: 20220303
  Serious: Yes (Life-Threatening, Hospitalization, Disabling)
  Sender: FDA-Public Use
  Company Number: None

PATIENT
  Age: 22 Year
  Sex: Male
  Weight: 77 kg

DRUGS (1)
  1. FINASTERIDE [Suspect]
     Active Substance: FINASTERIDE
     Indication: Alopecia
     Dosage: OTHER QUANTITY : 1 TABLET(S);?FREQUENCY : DAILY;?
     Route: 048
     Dates: start: 20191201, end: 20200517

REACTIONS (9)
  - Loss of libido [None]
  - Organic erectile dysfunction [None]
  - Muscular weakness [None]
  - Erectile dysfunction [None]
  - Feeling abnormal [None]
  - Sleep disorder [None]
  - Myalgia [None]
  - Feeling abnormal [None]
  - Disturbance in attention [None]

NARRATIVE: CASE EVENT DATE: 20200517
